FAERS Safety Report 5085556-0 (Version None)
Quarter: 2006Q3

REPORT INFORMATION
  Report Type: 
  Country: None (occurrence: None)
  Receive Date: 20060822
  Receipt Date: 20060810
  Transmission Date: 20061208
  Serious: Yes (Hospitalization)
  Sender: FDA-Public Use
  Company Number: PHEH2006US10244

PATIENT
  Sex: Female

DRUGS (5)
  1. MIACALCIN [Suspect]
     Indication: OSTEOPOROSIS
     Dosage: 200 IU, QD
     Dates: start: 20020426, end: 20060101
  2. MIACALCIN [Suspect]
     Dosage: 200 IU, QD
     Dates: start: 20060401
  3. ZOCOR [Concomitant]
  4. TENORMIN [Concomitant]
  5. PRILOSEC [Concomitant]

REACTIONS (3)
  - EPISTAXIS [None]
  - PERIPHERAL EMBOLISM [None]
  - PULMONARY EMBOLISM [None]
